FAERS Safety Report 13450317 (Version 1)
Quarter: 2017Q2

REPORT INFORMATION
  Report Type: Report from Study
  Country: None (occurrence: US)
  Receive Date: 20170417
  Receipt Date: 20170417
  Transmission Date: 20170830
  Serious: Yes (Other)
  Sender: FDA-Public Use
  Company Number: US-ABBVIE-17K-163-1883673-00

PATIENT
  Sex: Female

DRUGS (1)
  1. HUMIRA [Suspect]
     Active Substance: ADALIMUMAB
     Indication: RHEUMATOID ARTHRITIS
     Route: 058

REACTIONS (4)
  - Retinal tear [Recovered/Resolved]
  - Retinal haemorrhage [Recovered/Resolved]
  - Vitrectomy [Unknown]
  - Vitrectomy [Unknown]

NARRATIVE: CASE EVENT DATE: 2014
